FAERS Safety Report 25871396 (Version 1)
Quarter: 2025Q4

REPORT INFORMATION
  Report Type: Spontaneous
  Country: EU (occurrence: EU)
  Receive Date: 20251001
  Receipt Date: 20251001
  Transmission Date: 20260118
  Serious: Yes (Other)
  Sender: BRECKENRIDGE PHARMACEUTICAL, INC.
  Company Number: EU-Breckenridge Pharmaceutical, Inc.-2185719

PATIENT
  Sex: Female

DRUGS (3)
  1. OMEPRAZOLE [Suspect]
     Active Substance: OMEPRAZOLE
     Indication: Product used for unknown indication
  2. ESTRADIOL [Suspect]
     Active Substance: ESTRADIOL
  3. NAPROXEN [Suspect]
     Active Substance: NAPROXEN

REACTIONS (7)
  - Urticarial vasculitis [Not Recovered/Not Resolved]
  - Pain [Unknown]
  - Application site vesicles [Unknown]
  - Application site injury [Unknown]
  - Application site discomfort [Unknown]
  - Suspected product quality issue [Unknown]
  - Application site rash [Not Recovered/Not Resolved]
